FAERS Safety Report 6770324-1 (Version None)
Quarter: 2010Q2

REPORT INFORMATION
  Report Type: 
  Country: None (occurrence: None)
  Receive Date: 20100607
  Receipt Date: 20100525
  Transmission Date: 20101027
  Serious: Yes (Other)
  Sender: FDA-Public Use
  Company Number: 2010SP020798

PATIENT
  Age: 27 Year
  Sex: Female
  Weight: 110.6777 kg

DRUGS (4)
  1. IMPLANON [Suspect]
     Indication: DRUG USE FOR UNKNOWN INDICATION
     Dosage: 68 MG; SBDE; 68 MG; SBDE
     Dates: start: 20061228, end: 20091227
  2. IMPLANON [Suspect]
     Indication: DRUG USE FOR UNKNOWN INDICATION
     Dosage: 68 MG; SBDE; 68 MG; SBDE
     Dates: start: 20091227, end: 20100322
  3. IMPLANON [Concomitant]
  4. KEPPRA (CON.) [Concomitant]

REACTIONS (17)
  - COUGH [None]
  - DYSPHAGIA [None]
  - DYSPHONIA [None]
  - DYSPNOEA [None]
  - EMBOLISM [None]
  - FLUSHING [None]
  - HEADACHE [None]
  - LUNG NEOPLASM [None]
  - LYMPHADENOPATHY [None]
  - MALAISE [None]
  - MEDIASTINUM NEOPLASM [None]
  - NON-HODGKIN'S LYMPHOMA [None]
  - OROPHARYNGEAL PAIN [None]
  - SINUSITIS [None]
  - SWELLING FACE [None]
  - TREATMENT FAILURE [None]
  - WEIGHT DECREASED [None]
